FAERS Safety Report 12922343 (Version 1)
Quarter: 2016Q4

REPORT INFORMATION
  Report Type: Spontaneous
  Country: US (occurrence: US)
  Receive Date: 20161108
  Receipt Date: 20161108
  Transmission Date: 20170207
  Serious: No
  Sender: FDA-Public Use
  Company Number: US-BRISTOL-MYERS SQUIBB COMPANY-BMS-2016-088420

PATIENT
  Sex: Male

DRUGS (1)
  1. OPDIVO [Suspect]
     Active Substance: NIVOLUMAB
     Indication: MALIGNANT MELANOMA
     Route: 042

REACTIONS (5)
  - Asthenia [Recovering/Resolving]
  - Appetite disorder [Unknown]
  - Pruritus [Recovered/Resolved]
  - Thyroid disorder [Recovering/Resolving]
  - Diarrhoea [Recovered/Resolved]
